FAERS Safety Report 21234679 (Version 1)
Quarter: 2022Q3

REPORT INFORMATION
  Report Type: Spontaneous
  Country: US (occurrence: US)
  Receive Date: 20220820
  Receipt Date: 20220820
  Transmission Date: 20221026
  Serious: No
  Sender: FDA-Public Use
  Company Number: US-AUROBINDO-AUR-APL-2022-014001

PATIENT
  Age: 69 Year
  Sex: Male
  Weight: 72.5 kg

DRUGS (1)
  1. BELEODAQ [Suspect]
     Active Substance: BELINOSTAT
     Indication: Cutaneous T-cell lymphoma
     Dosage: 1000 MILLIGRAM, EVERY WEEK
     Route: 042
     Dates: start: 20220414

REACTIONS (1)
  - Injection site pain [Unknown]

NARRATIVE: CASE EVENT DATE: 20220414
